FAERS Safety Report 6874269-8 (Version None)
Quarter: 2010Q3

REPORT INFORMATION
  Report Type: 
  Country: None (occurrence: None)
  Receive Date: 20100723
  Receipt Date: 20090616
  Transmission Date: 20110219
  Serious: No
  Sender: FDA-Public Use
  Company Number: US-PFIZER INC-2009188304

PATIENT
  Sex: Female

DRUGS (1)
  1. CHANTIX [Suspect]
     Indication: SMOKING CESSATION THERAPY
     Dosage: UNIT DOSE: UNKNOWN;
     Route: 048
     Dates: start: 20090314

REACTIONS (4)
  - CONSTIPATION [None]
  - GAIT DISTURBANCE [None]
  - RENAL DISORDER [None]
  - SOMNOLENCE [None]
